FAERS Safety Report 5017931-4 (Version None)
Quarter: 2006Q2

REPORT INFORMATION
  Report Type: 
  Country: None (occurrence: None)
  Receive Date: 20060602
  Receipt Date: 20060602
  Transmission Date: 20061013
  Serious: No
  Sender: FDA-Public Use
  Company Number: None

PATIENT
  Sex: Male
  Weight: 135.1719 kg

DRUGS (1)
  1. LIPITOR [Suspect]
     Indication: BLOOD CHOLESTEROL INCREASED
     Dosage: 10MG  QHS PO
     Route: 048
     Dates: start: 20010101, end: 20060405

REACTIONS (2)
  - MUSCLE ATROPHY [None]
  - NEUROPATHY PERIPHERAL [None]
